FAERS Safety Report 9976694 (Version 1)
Quarter: 2014Q1

REPORT INFORMATION
  Report Type: Report from Study
  Country: US (occurrence: US)
  Receive Date: 20140306
  Receipt Date: 20140306
  Transmission Date: 20141002
  Serious: No
  Sender: FDA-Public Use
  Company Number: US-ABBVIE-13P-163-1167586-00

PATIENT
  Age: 41 Year
  Sex: Male

DRUGS (5)
  1. HUMIRA [Suspect]
     Indication: CROHN^S DISEASE
     Dates: start: 20131012, end: 20131012
  2. HUMIRA [Suspect]
     Dates: start: 20131026, end: 20131026
  3. HUMIRA [Suspect]
  4. ALLOPURINOL [Concomitant]
     Indication: GOUT
  5. AMLODIPINE [Concomitant]
     Indication: HYPERTENSION

REACTIONS (1)
  - Nausea [Not Recovered/Not Resolved]
